FAERS Safety Report 8713285 (Version 3)
Quarter: 2015Q1

REPORT INFORMATION
  Report Type: Report from Study
  Country: US (occurrence: US)
  Receive Date: 20120808
  Receipt Date: 20150225
  Transmission Date: 20150721
  Serious: Yes (Hospitalization)
  Sender: FDA-Public Use
  Company Number: US-ROCHE-1098640

PATIENT
  Age: 56 Year
  Sex: Female
  Weight: 85 kg

DRUGS (27)
  1. VESICARE [Concomitant]
     Active Substance: SOLIFENACIN SUCCINATE
     Dosage: EACH NIGHT AT BED TIME
     Route: 048
  2. FLOVENT [Concomitant]
     Active Substance: FLUTICASONE PROPIONATE
     Dosage: 2 PUFFS
     Route: 065
  3. DIFLUCAN [Concomitant]
     Active Substance: FLUCONAZOLE
     Route: 048
  4. DIFLUCAN [Concomitant]
     Active Substance: FLUCONAZOLE
     Route: 048
  5. PREDNISONE. [Concomitant]
     Active Substance: PREDNISONE
     Route: 048
  6. BIAXIN [Concomitant]
     Active Substance: CLARITHROMYCIN
     Route: 065
  7. ADVAIR HFA [Concomitant]
     Active Substance: FLUTICASONE PROPIONATE\SALMETEROL XINAFOATE
     Dosage: 500/50 MCG
     Route: 065
  8. PULMICORT TURBUHALER [Concomitant]
     Active Substance: BUDESONIDE
     Dosage: 1-2 PUFFS
     Route: 065
  9. SINGULAIR [Concomitant]
     Active Substance: MONTELUKAST SODIUM
     Dosage: EACH NIGHT AT BED TIME
     Route: 048
  10. XOLAIR [Suspect]
     Active Substance: OMALIZUMAB
     Indication: ASTHMA
     Dosage: 300 MG IN DIVIDED DOSES
     Route: 058
     Dates: start: 20030813
  11. LIPITOR [Concomitant]
     Active Substance: ATORVASTATIN CALCIUM
     Route: 065
  12. DIFLUCAN [Concomitant]
     Active Substance: FLUCONAZOLE
     Route: 048
  13. DIFLUCAN [Concomitant]
     Active Substance: FLUCONAZOLE
     Route: 048
  14. SINGULAIR [Concomitant]
     Active Substance: MONTELUKAST SODIUM
  15. PREDNISONE. [Concomitant]
     Active Substance: PREDNISONE
     Route: 048
  16. NEXIUM [Concomitant]
     Active Substance: ESOMEPRAZOLE MAGNESIUM
     Dosage: TAKE TONIGHT
     Route: 048
  17. NEXIUM [Concomitant]
     Active Substance: ESOMEPRAZOLE MAGNESIUM
     Dosage: TAKE TONIGHT
     Route: 048
  18. ATROVENT [Concomitant]
     Active Substance: IPRATROPIUM BROMIDE
     Dosage: 0.2MG/ML
     Route: 065
  19. ALBUTEROL. [Concomitant]
     Active Substance: ALBUTEROL
     Dosage: 2 PUFFS
     Route: 065
  20. ALBUTEROL. [Concomitant]
     Active Substance: ALBUTEROL
     Dosage: 0.83MG/ML
     Route: 065
  21. SPIRIVA [Concomitant]
     Active Substance: TIOTROPIUM BROMIDE MONOHYDRATE
     Dosage: 1 PUFF
     Route: 065
  22. SEREVENT [Concomitant]
     Active Substance: SALMETEROL XINAFOATE
     Dosage: 1PUFF
     Route: 065
  23. LIDOCAINE. [Concomitant]
     Active Substance: LIDOCAINE
  24. PREDNISONE. [Concomitant]
     Active Substance: PREDNISONE
     Route: 048
  25. CLARITHROMYCIN. [Concomitant]
     Active Substance: CLARITHROMYCIN
     Route: 065
  26. IBUPROFEN. [Concomitant]
     Active Substance: IBUPROFEN
     Route: 048
  27. DIFLUCAN [Concomitant]
     Active Substance: FLUCONAZOLE
     Route: 048

REACTIONS (8)
  - Pain [Unknown]
  - Chest discomfort [Unknown]
  - Wheezing [Unknown]
  - Malaise [Unknown]
  - Atelectasis [Unknown]
  - Dyspnoea [Unknown]
  - Asthma [Unknown]
  - Cough [Unknown]

NARRATIVE: CASE EVENT DATE: 20080606
